FAERS Safety Report 6688094-4 (Version None)
Quarter: 2010Q2

REPORT INFORMATION
  Report Type: 
  Country: None (occurrence: None)
  Receive Date: 20100420
  Receipt Date: 20100413
  Transmission Date: 20101027
  Serious: Yes (Hospitalization, Other)
  Sender: FDA-Public Use
  Company Number: US-BAYER-201018104NA

PATIENT
  Age: 81 Year
  Sex: Male

DRUGS (6)
  1. SORAFENIB [Suspect]
     Indication: BILE DUCT CANCER
     Route: 048
     Dates: start: 20090918, end: 20090923
  2. CISPLATIN [Suspect]
     Indication: BILE DUCT CANCER
     Dates: start: 20090918, end: 20090923
  3. GEMCITABINE HCL [Suspect]
     Indication: BILE DUCT CANCER
     Dates: start: 20090918, end: 20090923
  4. POTASSIUM SUPPLEMENTATION [Concomitant]
  5. COLACE [Concomitant]
  6. ANTACID TAB [Concomitant]

REACTIONS (6)
  - ABDOMINAL PAIN [None]
  - CHEST PAIN [None]
  - DEHYDRATION [None]
  - HYPONATRAEMIA [None]
  - INAPPROPRIATE ANTIDIURETIC HORMONE SECRETION [None]
  - PLATELET COUNT DECREASED [None]
